FAERS Safety Report 4310273-1 (Version None)
Quarter: 2004Q1

REPORT INFORMATION
  Report Type: 
  Country: None (occurrence: None)
  Receive Date: 20040301
  Receipt Date: 20040301
  Transmission Date: 20041129
  Serious: Yes (Hospitalization)
  Sender: FDA-Public Use
  Company Number: None

PATIENT
  Age: 67 Year
  Sex: Female

DRUGS (1)
  1. TACROLIMUS [Suspect]
     Indication: LUNG TRANSPLANT

REACTIONS (5)
  - BLOOD CREATININE INCREASED [None]
  - DYSPNOEA [None]
  - PRODUCTIVE COUGH [None]
  - RENAL FAILURE CHRONIC [None]
  - SPUTUM DISCOLOURED [None]
